FAERS Safety Report 6209609-6 (Version None)
Quarter: 2009Q2

REPORT INFORMATION
  Report Type: 
  Country: None (occurrence: None)
  Receive Date: 20090601
  Receipt Date: 20090520
  Transmission Date: 20091009
  Serious: Yes (Other)
  Sender: FDA-Public Use
  Company Number: AU-SOLVAY-00308006100

PATIENT
  Age: 914 Month
  Sex: Male

DRUGS (3)
  1. ASPIRIN [Concomitant]
     Indication: MYOCARDIAL ISCHAEMIA
     Dosage: DAILY DOSE:  UNKNOWN
     Route: 065
  2. CREON [Suspect]
     Indication: PANCREATIC INSUFFICIENCY
     Dosage: DAILY DOSE:  UNKNOWN, AS USED: 25,000, FREQUENCY: 3 TIMES A DAY.
     Route: 048
     Dates: start: 20050101, end: 20060101
  3. CREON [Suspect]
     Dosage: DAILY DOSE:  UNKNOWN, AS USED: 10,000, FREQUENCY: TWICE A DAY.
     Route: 048
     Dates: start: 20060201

REACTIONS (1)
  - DUODENAL ULCER HAEMORRHAGE [None]
